FAERS Safety Report 4639511-2 (Version None)
Quarter: 2005Q2

REPORT INFORMATION
  Report Type: 
  Country: None (occurrence: None)
  Receive Date: 20050419
  Receipt Date: 20050405
  Transmission Date: 20051028
  Serious: Yes (Death, Hospitalization)
  Sender: FDA-Public Use
  Company Number: 2004IM001014

PATIENT
  Age: 48 Year
  Sex: Male
  Weight: 95.709 kg

DRUGS (8)
  1. BLINDED THERAPY (INTERFERON GAMMA-1B) [Suspect]
     Indication: IDIOPATHIC PULMONARY FIBROSIS
     Dosage: 200 UG, TIW, SUBCUTANEOUS
     Route: 058
     Dates: start: 20040823, end: 20041208
  2. PREVACID [Concomitant]
  3. ZOLOFT [Concomitant]
  4. VICODIN [Concomitant]
  5. XANAX [Concomitant]
  6. TRAMADOL HCL [Concomitant]
  7. LORATADINE [Concomitant]
  8. OXYGEN [Concomitant]

REACTIONS (9)
  - ACUTE RESPIRATORY FAILURE [None]
  - ALVEOLITIS [None]
  - ARTHRALGIA [None]
  - BACTERIAL INFECTION [None]
  - HYPOTENSION [None]
  - INTERSTITIAL LUNG DISEASE [None]
  - ORTHOPNOEA [None]
  - PLEURITIC PAIN [None]
  - PNEUMONIA [None]
